FAERS Safety Report 9901710 (Version 1)
Quarter: 2014Q1

REPORT INFORMATION
  Report Type: Spontaneous
  Country: TR (occurrence: TR)
  Receive Date: 20140217
  Receipt Date: 20140217
  Transmission Date: 20141002
  Serious: Yes (Other)
  Sender: FDA-Public Use
  Company Number: PHHY2014TR015523

PATIENT
  Age: 26 Year
  Sex: Male

DRUGS (6)
  1. CICLOSPORIN [Suspect]
     Indication: PROPHYLAXIS AGAINST GRAFT VERSUS HOST DISEASE
  2. CICLOSPORIN [Suspect]
     Indication: IMMUNOSUPPRESSION
  3. METHOTREXATE [Suspect]
     Indication: PROPHYLAXIS AGAINST GRAFT VERSUS HOST DISEASE
  4. MYCOPHENOLATE MOFETIL [Suspect]
     Indication: IMMUNOSUPPRESSION
  5. CORTICOSTEROIDS [Suspect]
     Indication: IMMUNOSUPPRESSION
  6. CYCLOPHOSPHAMIDE [Concomitant]
     Dosage: 120 MG/KG, UNK

REACTIONS (7)
  - Hypogammaglobulinaemia [Unknown]
  - Acute graft versus host disease in skin [Recovered/Resolved]
  - Aspergillus infection [Recovering/Resolving]
  - Pyrexia [Unknown]
  - Ecchymosis [Unknown]
  - Skin lesion [Unknown]
  - Drug ineffective [Unknown]
